FAERS Safety Report 4652535-4 (Version None)
Quarter: 2005Q2

REPORT INFORMATION
  Report Type: 
  Country: None (occurrence: None)
  Receive Date: 20050502
  Receipt Date: 20050420
  Transmission Date: 20051028
  Serious: Yes (Other)
  Sender: FDA-Public Use
  Company Number: 2005062743

PATIENT
  Sex: Male

DRUGS (7)
  1. NICORETTE [Suspect]
     Indication: SMOKING CESSATION THERAPY
     Dosage: 5 MG, TRANSDERMAL
     Route: 062
     Dates: start: 20050407
  2. DILTIAZEM HYDROCHLORIDE [Concomitant]
  3. ASPIRIN [Concomitant]
  4. SALBUTAMOL (SALBUTAMOL) [Concomitant]
  5. BISOPROLOL (BISOPROLOL) [Concomitant]
  6. NITROGLYCERIN [Concomitant]
  7. SIMVASTATIN [Concomitant]

REACTIONS (3)
  - COUGH [None]
  - LOSS OF CONSCIOUSNESS [None]
  - ORTHOSTATIC HYPOTENSION [None]
